FAERS Safety Report 21247563 (Version 2)
Quarter: 2022Q3

REPORT INFORMATION
  Report Type: Spontaneous
  Country: US (occurrence: US)
  Receive Date: 20220824
  Receipt Date: 20220919
  Transmission Date: 20221027
  Serious: Yes (Hospitalization, Other)
  Sender: FDA-Public Use
  Company Number: US-SMITH AND NEPHEW, INC-2022SMT00135

PATIENT
  Sex: Male

DRUGS (3)
  1. COLLAGENASE SANTYL [Suspect]
     Active Substance: COLLAGENASE CLOSTRIDIUM HISTOLYTICUM
     Dosage: UNK
     Dates: start: 20220718
  2. DEVICE [Suspect]
     Active Substance: DEVICE
     Indication: Therapeutic skin care topical
     Dosage: UNK
  3. DEVICE [Suspect]
     Active Substance: DEVICE
     Indication: Ileostomy

REACTIONS (2)
  - Limb injury [Unknown]
  - Medical procedure [Unknown]

NARRATIVE: CASE EVENT DATE: 20220101
